FAERS Safety Report 15931171 (Version 2)
Quarter: 2019Q2

REPORT INFORMATION
  Report Type: Report from Study
  Country: US (occurrence: US)
  Receive Date: 20190207
  Receipt Date: 20190409
  Transmission Date: 20190711
  Serious: Yes (Other)
  Sender: FDA-Public Use
  Company Number: US-BIOGEN-2019BI00692116

PATIENT
  Sex: Female

DRUGS (1)
  1. TYSABRI [Suspect]
     Active Substance: NATALIZUMAB
     Indication: MULTIPLE SCLEROSIS
     Route: 050
     Dates: start: 20140320, end: 20150227

REACTIONS (7)
  - Cerebrovascular arteriovenous malformation [Unknown]
  - Seizure [Not Recovered/Not Resolved]
  - Pain [Not Recovered/Not Resolved]
  - Dementia [Not Recovered/Not Resolved]
  - Chronic obstructive pulmonary disease [Not Recovered/Not Resolved]
  - Depression [Not Recovered/Not Resolved]
  - Multiple sclerosis [Not Recovered/Not Resolved]
